FAERS Safety Report 24284635 (Version 1)
Quarter: 2024Q3

REPORT INFORMATION
  Report Type: Spontaneous
  Country: US (occurrence: US)
  Receive Date: 20240905
  Receipt Date: 20240905
  Transmission Date: 20241016
  Serious: Yes (Hospitalization, Other)
  Sender: AMGEN
  Company Number: US-AMGEN-USASP2024173468

PATIENT
  Age: 73 Year
  Sex: Male

DRUGS (5)
  1. PREDNISONE [Suspect]
     Active Substance: PREDNISONE
     Indication: Seizure
     Dosage: (60 MG OR 1 MG/KG/DAY FOLLOWED BY A GRADUAL TAPER), QD
     Route: 048
  2. LEVETIRACETAM [Concomitant]
     Active Substance: LEVETIRACETAM
     Indication: Seizure
     Dosage: UNK
  3. VALPROIC ACID [Concomitant]
     Active Substance: VALPROIC ACID
     Indication: Seizure
     Dosage: UNK
  4. CLONAZEPAM [Concomitant]
     Active Substance: CLONAZEPAM
     Indication: Seizure
     Dosage: UNK
  5. METHYLPREDNISOLONE [Concomitant]
     Active Substance: METHYLPREDNISOLONE
     Indication: Seizure
     Dosage: 30 MG/KG (MAXIMUM 1 G) 5 DAYS, QD
     Route: 042

REACTIONS (4)
  - Myopathy [Unknown]
  - Faciobrachial dystonic seizure [Unknown]
  - Cognitive disorder [Unknown]
  - Off label use [Unknown]
